FAERS Safety Report 7199498-8 (Version None)
Quarter: 2010Q4

REPORT INFORMATION
  Report Type: 
  Country: None (occurrence: None)
  Receive Date: 20101228
  Receipt Date: 20101213
  Transmission Date: 20110411
  Serious: Yes (Other)
  Sender: FDA-Public Use
  Company Number: DE-CELGENEUS-062-50794-10080606

PATIENT

DRUGS (3)
  1. VIDAZA [Suspect]
     Route: 050
  2. IMMUNE CELLS HUMAN [Suspect]
     Dosage: 1-5X10EXP6 - 1-5X10EXP8 CELL/KG
     Route: 065
  3. RED BLOOD CELLS, CONCENTRATED [Concomitant]
     Route: 051

REACTIONS (6)
  - ACUTE GRAFT VERSUS HOST DISEASE [None]
  - C-REACTIVE PROTEIN INCREASED [None]
  - CHRONIC GRAFT VERSUS HOST DISEASE [None]
  - GASTROINTESTINAL DISORDER [None]
  - HAEMATOTOXICITY [None]
  - INFECTION [None]
